FAERS Safety Report 13470788 (Version 2)
Quarter: 2017Q3

REPORT INFORMATION
  Report Type: Spontaneous
  Country: US (occurrence: US)
  Receive Date: 20170424
  Receipt Date: 20170721
  Transmission Date: 20171127
  Serious: Yes (Other)
  Sender: FDA-Public Use
  Company Number: US-AMGEN-USASP2017060295

PATIENT
  Age: 84 Year
  Sex: Female
  Weight: 52.61 kg

DRUGS (2)
  1. ZONALON [Suspect]
     Active Substance: DOXEPIN HYDROCHLORIDE
     Indication: PRURITUS
     Route: 065
  2. PROLIA [Suspect]
     Active Substance: DENOSUMAB
     Indication: PRODUCT USED FOR UNKNOWN INDICATION
     Dosage: UNK
     Route: 065
     Dates: start: 201312

REACTIONS (4)
  - Eczema [Recovering/Resolving]
  - Ocular hyperaemia [Unknown]
  - Adverse drug reaction [Unknown]
  - Glaucoma [Not Recovered/Not Resolved]

NARRATIVE: CASE EVENT DATE: 201702
